FAERS Safety Report 9538693 (Version 1)
Quarter: 2013Q2

REPORT INFORMATION
  Report Type: Spontaneous
  Country: US (occurrence: None)
  Receive Date: 20130517
  Receipt Date: 20130517
  Transmission Date: 20140414
  Serious: Yes (Other)
  Sender: FDA-Public Use
  Company Number: 1000042739

PATIENT
  Age: 30 Year
  Sex: Male

DRUGS (1)
  1. VIIBRYD [Suspect]
     Dates: start: 20130206

REACTIONS (1)
  - Insomnia [None]
